FAERS Safety Report 24231007 (Version 1)
Quarter: 2024Q3

REPORT INFORMATION
  Report Type: Spontaneous
  Country: GB (occurrence: GB)
  Receive Date: 20240821
  Receipt Date: 20240821
  Transmission Date: 20241017
  Serious: Yes (Other)
  Sender: RANBAXY
  Company Number: GB-MHRA-TPP29653941C5928230YC1722757435566

PATIENT
  Age: 43 Year
  Sex: Female
  Weight: 68 kg

DRUGS (3)
  1. RISPERIDONE [Suspect]
     Active Substance: RISPERIDONE
     Indication: Ill-defined disorder
     Dosage: TAKE ONE TWICE DAILY,  AS   DIRECTED  BY  PSYCH...
     Route: 048
     Dates: start: 20240722
  2. ESTRADERM [Concomitant]
     Active Substance: ESTRADIOL
     Indication: Ill-defined disorder
     Dosage: APPLY ONE TWICE WEEKLY
     Route: 065
     Dates: start: 20240802
  3. UTROGESTAN [Concomitant]
     Active Substance: PROGESTERONE
     Indication: Ill-defined disorder
     Dosage: TAKE ONE DAILY
     Route: 065
     Dates: start: 20240802

REACTIONS (2)
  - Tardive dyskinesia [Unknown]
  - Extrapyramidal disorder [Recovering/Resolving]
